FAERS Safety Report 5075824-0 (Version None)
Quarter: 2006Q3

REPORT INFORMATION
  Report Type: 
  Country: None (occurrence: None)
  Receive Date: 20060809
  Receipt Date: 20060804
  Transmission Date: 20061208
  Serious: Yes (Life-Threatening, Hospitalization, Disabling)
  Sender: FDA-Public Use
  Company Number: JP-JPN-A200603000

PATIENT
  Age: 68 Year
  Sex: Male

DRUGS (11)
  1. ZEFIX [Suspect]
     Indication: HEPATITIS B
     Dosage: 50MG PER DAY
     Route: 048
     Dates: start: 20060605, end: 20060804
  2. MUCODYNE [Concomitant]
     Route: 048
  3. LACTULOSE [Concomitant]
     Route: 048
  4. PERSANTIN [Concomitant]
     Route: 065
  5. PARIET [Concomitant]
     Route: 048
  6. ALDACTONE A [Concomitant]
     Route: 048
  7. PANTOSIN [Concomitant]
     Route: 048
  8. LASIX [Concomitant]
     Route: 065
  9. URSO [Concomitant]
     Route: 048
  10. PREDONINE [Concomitant]
     Route: 065
  11. HOKUNALIN [Concomitant]
     Route: 061

REACTIONS (1)
  - THROMBOCYTOPENIA [None]
